FAERS Safety Report 19023851 (Version 1)
Quarter: 2021Q1

REPORT INFORMATION
  Report Type: Spontaneous
  Country: NL (occurrence: NL)
  Receive Date: 20210318
  Receipt Date: 20210318
  Transmission Date: 20210420
  Serious: Yes (Life-Threatening, Hospitalization, Other)
  Sender: FDA-Public Use
  Company Number: NL-TEVA-2021-NL-1891461

PATIENT
  Age: 59 Year
  Sex: Male

DRUGS (3)
  1. PREDNISONE. [Suspect]
     Active Substance: PREDNISONE
     Indication: AUTOIMMUNE HAEMOLYTIC ANAEMIA
     Dosage: 1 MG/KG
     Route: 065
     Dates: start: 201903, end: 2019
  2. PREDNISONE. [Suspect]
     Active Substance: PREDNISONE
     Route: 065
     Dates: start: 2019, end: 2019
  3. IDELALISIB [Suspect]
     Active Substance: IDELALISIB
     Indication: AUTOIMMUNE HAEMOLYTIC ANAEMIA
     Route: 065
     Dates: start: 201903, end: 2019

REACTIONS (8)
  - Pneumonia cryptococcal [Recovered/Resolved]
  - Lymphopenia [Recovering/Resolving]
  - Disseminated cryptococcosis [Recovered/Resolved]
  - Sepsis [Recovered/Resolved]
  - Cryptococcosis [Recovered/Resolved]
  - Fungaemia [Recovered/Resolved]
  - Enterococcal infection [Recovered/Resolved]
  - Neurocryptococcosis [Recovered/Resolved]

NARRATIVE: CASE EVENT DATE: 201907
